FAERS Safety Report 12068582 (Version 2)
Quarter: 2016Q1

REPORT INFORMATION
  Report Type: Report from Study
  Country: AR (occurrence: AR)
  Receive Date: 20160211
  Receipt Date: 20160223
  Transmission Date: 20160526
  Serious: Yes (Other)
  Sender: FDA-Public Use
  Company Number: PHHY2016AR016759

PATIENT
  Sex: Female

DRUGS (3)
  1. BISOPROLOL [Concomitant]
     Active Substance: BISOPROLOL
     Indication: PRODUCT USED FOR UNKNOWN INDICATION
     Route: 065
  2. DIOVAN D [Suspect]
     Active Substance: HYDROCHLOROTHIAZIDE\VALSARTAN
     Indication: CARDIAC DISORDER
     Dosage: 0.5 DF (80/12.5), QD
     Route: 065
  3. DIOVAN D [Suspect]
     Active Substance: HYDROCHLOROTHIAZIDE\VALSARTAN
     Indication: HYPERTENSION
     Dosage: 0.5 DF (80/12.5), QD
     Route: 065

REACTIONS (14)
  - Gait disturbance [Unknown]
  - Limb injury [Unknown]
  - Pulse abnormal [Unknown]
  - Spinal fracture [Recovered/Resolved]
  - Fistula [Recovered/Resolved with Sequelae]
  - Diabetes mellitus [Unknown]
  - Skin discolouration [Recovered/Resolved with Sequelae]
  - Pain in extremity [Unknown]
  - Dyspnoea [Unknown]
  - Back pain [Unknown]
  - Malaise [Unknown]
  - Fall [Unknown]
  - Wrong technique in product usage process [Unknown]
  - Fall [Recovered/Resolved]
